FAERS Safety Report 5419306-2 (Version None)
Quarter: 2007Q3

REPORT INFORMATION
  Report Type: 
  Country: None (occurrence: None)
  Receive Date: 20070815
  Receipt Date: 20070802
  Transmission Date: 20080115
  Serious: Yes (Hospitalization, Other)
  Sender: FDA-Public Use
  Company Number: 2007BI016392

PATIENT
  Age: 61 Year
  Sex: Female
  Weight: 85.2762 kg

DRUGS (6)
  1. AVONEX [Suspect]
     Indication: DRUG USE FOR UNKNOWN INDICATION
     Dosage: 30 UG; QW; IM
     Route: 030
  2. AVONEX [Suspect]
     Indication: DRUG USE FOR UNKNOWN INDICATION
     Dosage: 30 UG; QW; IM
     Route: 030
     Dates: start: 20050809
  3. DULCOLAX [Concomitant]
  4. STOOL SOFTENER [Concomitant]
  5. LIPITOR [Concomitant]
  6. IRON [Concomitant]

REACTIONS (5)
  - COLON CANCER [None]
  - FULL BLOOD COUNT DECREASED [None]
  - HEPATIC ENZYME INCREASED [None]
  - PAIN [None]
  - RENAL FUNCTION TEST ABNORMAL [None]
